FAERS Safety Report 7580118-5 (Version None)
Quarter: 2011Q2

REPORT INFORMATION
  Report Type: 
  Country: None (occurrence: None)
  Receive Date: 20110629
  Receipt Date: 20110624
  Transmission Date: 20111010
  Serious: Yes (Other)
  Sender: FDA-Public Use
  Company Number: CA-ELI_LILLY_AND_COMPANY-CA201106007113

PATIENT
  Sex: Female

DRUGS (7)
  1. ASPIRIN [Concomitant]
  2. ALTACE [Concomitant]
  3. LITHIUM CARBONATE [Concomitant]
  4. ZYPREXA [Suspect]
     Dosage: 7.5 MG, EACH EVENING
     Route: 048
  5. LEVOTHYROXINE SODIUM [Concomitant]
  6. LIPITOR [Concomitant]
  7. ZYPREXA [Suspect]
     Indication: BIPOLAR DISORDER
     Dosage: 25 MG, EACH EVENING
     Route: 048
     Dates: start: 19990811

REACTIONS (5)
  - DIABETIC NEPHROPATHY [None]
  - ASPARTATE AMINOTRANSFERASE INCREASED [None]
  - OVERDOSE [None]
  - DIABETES MELLITUS [None]
  - ALANINE AMINOTRANSFERASE INCREASED [None]
